FAERS Safety Report 23930406 (Version 3)
Quarter: 2024Q2

REPORT INFORMATION
  Report Type: Report from Study
  Country: US (occurrence: US)
  Receive Date: 20240602
  Receipt Date: 20240617
  Transmission Date: 20240716
  Serious: Yes (Hospitalization)
  Sender: FDA-Public Use
  Company Number: US-ABBVIE-5781377

PATIENT
  Age: 47 Year
  Sex: Female
  Weight: 91 kg

DRUGS (7)
  1. RINVOQ [Suspect]
     Active Substance: UPADACITINIB
     Indication: SLE arthritis
     Dosage: FORM STRENGTH: 15 MILLIGRAM
     Route: 048
     Dates: start: 20240405, end: 20240605
  2. RINVOQ [Suspect]
     Active Substance: UPADACITINIB
     Indication: SLE arthritis
     Dosage: FORM STRENGTH: 15 MILLIGRAM
     Route: 048
     Dates: start: 20240404, end: 20240404
  3. RINVOQ [Suspect]
     Active Substance: UPADACITINIB
     Indication: SLE arthritis
     Dosage: FORM STRENGTH: 15 MILLIGRAM, FIRST ADMIN DATE: JUN 2024
     Route: 048
  4. TRAZODONE [Concomitant]
     Active Substance: TRAZODONE HYDROCHLORIDE
     Indication: Sleep disorder
  5. VANCOMYCIN [Concomitant]
     Active Substance: VANCOMYCIN
     Indication: Clostridium difficile infection
  6. CITALOPRAM [Concomitant]
     Active Substance: CITALOPRAM\CITALOPRAM HYDROBROMIDE
     Indication: Anxiety
  7. LEFLUNOMIDE [Concomitant]
     Active Substance: LEFLUNOMIDE
     Indication: Rheumatoid arthritis

REACTIONS (4)
  - Clostridium difficile infection [Recovering/Resolving]
  - Dehydration [Recovered/Resolved]
  - Dizziness [Recovered/Resolved]
  - Blood potassium decreased [Unknown]

NARRATIVE: CASE EVENT DATE: 20240405
